FAERS Safety Report 8453943-6 (Version None)
Quarter: 2012Q2

REPORT INFORMATION
  Report Type: 
  Country: None (occurrence: None)
  Receive Date: 20120620
  Receipt Date: 20120607
  Transmission Date: 20120825
  Serious: Yes (Other)
  Sender: FDA-Public Use
  Company Number: JP-MYLANLABS-2012S1011700

PATIENT
  Age: 5 Month
  Sex: Female

DRUGS (3)
  1. PYRIDOXINE HCL [Concomitant]
     Route: 065
  2. VALPROIC ACID [Suspect]
     Indication: CONVULSION
     Dosage: 30 MG/KG, FOR 2WKS
     Route: 065
  3. PHENOBARBITAL TAB [Concomitant]
     Indication: CONVULSION
     Route: 065

REACTIONS (3)
  - PARADOXICAL DRUG REACTION [None]
  - PYREXIA [None]
  - CONVULSION [None]
